FAERS Safety Report 10169245 (Version 1)
Quarter: 2014Q2

REPORT INFORMATION
  Report Type: Spontaneous
  Country: ES (occurrence: None)
  Receive Date: 20140509
  Receipt Date: 20140509
  Transmission Date: 20141212
  Serious: Yes (Hospitalization)
  Sender: FDA-Public Use
  Company Number: ES-ALKEM-000579

PATIENT
  Age: 19 Year
  Sex: Female

DRUGS (4)
  1. MYCOPHENOLATE MOFETIL [Suspect]
     Indication: LUPUS NEPHRITIS
     Dosage: 24 HOURS
  2. MYCOPHENOLIC ACID [Suspect]
     Indication: LUPUS NEPHRITIS
  3. MYFORTIC [Suspect]
     Indication: LUPUS NEPHRITIS
  4. CYCLOPHOSPHAMIDE (CYCLOPHOSPHAMIDE) [Concomitant]

REACTIONS (13)
  - Gastrointestinal disorder [None]
  - Systemic lupus erythematosus [None]
  - Condition aggravated [None]
  - Treatment noncompliance [None]
  - Abdominal discomfort [None]
  - Pyrexia [None]
  - Polyserositis [None]
  - Pancytopenia [None]
  - Proteinuria [None]
  - Vasculitis [None]
  - Renal impairment [None]
  - Drug dose omission [None]
  - Drug level decreased [None]
